FAERS Safety Report 14837130 (Version 2)
Quarter: 2018Q4

REPORT INFORMATION
  Report Type: Spontaneous
  Country: FR (occurrence: FR)
  Receive Date: 20180502
  Receipt Date: 20181024
  Transmission Date: 20190204
  Serious: Yes (Other)
  Sender: FDA-Public Use
  Company Number: FR-MERCK KGAA-2047000

PATIENT
  Sex: Male

DRUGS (1)
  1. EUTHYROX [Suspect]
     Active Substance: LEVOTHYROXINE SODIUM
     Indication: PRODUCT USED FOR UNKNOWN INDICATION

REACTIONS (7)
  - Hypersomnia [None]
  - Decreased interest [None]
  - Fatigue [None]
  - Nervousness [None]
  - Psychiatric symptom [None]
  - Depression [None]
  - Living alone [None]
